FAERS Safety Report 4778550-8 (Version None)
Quarter: 2005Q3

REPORT INFORMATION
  Report Type: 
  Country: None (occurrence: None)
  Receive Date: 20050926
  Receipt Date: 20050712
  Transmission Date: 20060218
  Serious: Yes (Hospitalization, Disabling)
  Sender: FDA-Public Use
  Company Number: US-MERCK-0507USA01667

PATIENT
  Age: 48 Year
  Sex: Male
  Weight: 85 kg

DRUGS (2)
  1. VIOXX [Suspect]
     Indication: EPICONDYLITIS
     Route: 048
     Dates: start: 20021201, end: 20030701
  2. ZOVIRAX [Concomitant]
     Route: 065

REACTIONS (17)
  - ABSCESS [None]
  - CATHETER RELATED INFECTION [None]
  - CHEST PAIN [None]
  - CORONARY ARTERY THROMBOSIS [None]
  - DYSPNOEA [None]
  - HAEMATOCRIT DECREASED [None]
  - HAEMOGLOBIN DECREASED [None]
  - HYPERLIPIDAEMIA [None]
  - HYPERTENSION [None]
  - HYPOTENSION [None]
  - MYOCARDIAL INFARCTION [None]
  - PALPITATIONS [None]
  - PLATELET COUNT INCREASED [None]
  - POST PROCEDURAL HAEMORRHAGE [None]
  - PULMONARY CONGESTION [None]
  - RETROPERITONEAL HAEMATOMA [None]
  - URINARY TRACT INFECTION [None]
